FAERS Safety Report 6308090-6 (Version None)
Quarter: 2009Q3

REPORT INFORMATION
  Report Type: 
  Country: None (occurrence: None)
  Receive Date: 20090810
  Receipt Date: 20090803
  Transmission Date: 20100115
  Serious: Yes (Hospitalization)
  Sender: FDA-Public Use
  Company Number: CIP09002035

PATIENT
  Age: 86 Year
  Sex: Female

DRUGS (8)
  1. ACTONEL [Suspect]
     Dosage: 150 MG ONCE A MONTH, ORAL
     Route: 048
     Dates: start: 20090330
  2. CALCIUM +D (CALCIUM, ERGOCALCIFEROL) [Concomitant]
  3. GLUCOSAMINE + CHONDROITIN (CHONDROITIN SULFATE, GLUCOSAMINE) [Concomitant]
  4. ASPIRIN [Concomitant]
  5. PLAVIX [Concomitant]
  6. PRAVACHOL [Concomitant]
  7. SPIRONOLACTONE [Concomitant]
  8. MULTIVITAMIN /00097801/ (ASCORBIC ACID, CALCIUM PANTOTHENATE, ERGOCALC [Concomitant]

REACTIONS (4)
  - ANAEMIA [None]
  - CARDIOVERSION [None]
  - HAEMATEMESIS [None]
  - HAEMORRHAGE [None]
